FAERS Safety Report 23300313 (Version 2)
Quarter: 2023Q4

REPORT INFORMATION
  Report Type: Report from Study
  Country: FR (occurrence: FR)
  Receive Date: 20231215
  Receipt Date: 20231220
  Transmission Date: 20240110
  Serious: Yes (Other)
  Sender: FDA-Public Use
  Company Number: FR-SERVIER-S23014276

PATIENT

DRUGS (5)
  1. IVOSIDENIB [Suspect]
     Active Substance: IVOSIDENIB
     Indication: Glioma
     Dosage: 500 MG, QD
     Route: 048
     Dates: start: 20230703
  2. MELATONIN [Suspect]
     Active Substance: MELATONIN
     Indication: Insomnia
     Dosage: 2 MG, QD
     Route: 048
     Dates: start: 20230301
  3. ETHINYL ESTRADIOL\LEVONORGESTREL [Suspect]
     Active Substance: ETHINYL ESTRADIOL\LEVONORGESTREL
     Indication: Endometriosis
     Dosage: 1 DF, QD
     Route: 048
     Dates: start: 20200630, end: 202307
  4. ETHINYL ESTRADIOL\LEVONORGESTREL [Suspect]
     Active Substance: ETHINYL ESTRADIOL\LEVONORGESTREL
     Indication: Contraception
  5. LAMOTRIGINE [Concomitant]
     Active Substance: LAMOTRIGINE
     Indication: Epilepsy
     Dosage: 250 MG, QD
     Route: 048
     Dates: start: 20160219

REACTIONS (5)
  - Endometriosis [Recovered/Resolved]
  - Insomnia [Recovering/Resolving]
  - Vomiting [Recovered/Resolved]
  - Drug interaction [Recovered/Resolved]
  - Weight decreased [Not Recovered/Not Resolved]

NARRATIVE: CASE EVENT DATE: 20230701
